FAERS Safety Report 19001186 (Version 1)
Quarter: 2021Q1

REPORT INFORMATION
  Report Type: Spontaneous
  Country: CA (occurrence: CA)
  Receive Date: 20210312
  Receipt Date: 20210312
  Transmission Date: 20210420
  Serious: Yes (Life-Threatening, Hospitalization, Other)
  Sender: FDA-Public Use
  Company Number: CA-GRANULES-CA-2021GRALIT00183

PATIENT
  Sex: Male

DRUGS (5)
  1. ACETYLCYSTEINE. [Interacting]
     Active Substance: ACETYLCYSTEINE
     Route: 065
  2. ACETYLCYSTEINE. [Interacting]
     Active Substance: ACETYLCYSTEINE
     Indication: PRODUCT USED FOR UNKNOWN INDICATION
     Route: 065
  3. ACETYLCYSTEINE. [Interacting]
     Active Substance: ACETYLCYSTEINE
     Route: 065
  4. GLUCOSE [Interacting]
     Active Substance: DEXTROSE
     Indication: HYPOGLYCAEMIA
     Route: 065
  5. ACETAMINOPHEN. [Suspect]
     Active Substance: ACETAMINOPHEN
     Indication: PRODUCT USED FOR UNKNOWN INDICATION
     Route: 065

REACTIONS (10)
  - Hypoglycaemia neonatal [Recovered/Resolved]
  - Overdose [Unknown]
  - Neonatal respiratory depression [Recovered/Resolved]
  - Encephalopathy neonatal [Recovered/Resolved]
  - Metabolic acidosis [Recovered/Resolved]
  - Foetal heart rate decreased [Recovered/Resolved]
  - Toxicity to various agents [Recovered/Resolved]
  - Premature baby [Unknown]
  - Liver injury [Recovered/Resolved]
  - Foetal exposure during pregnancy [Unknown]
